FAERS Safety Report 10185481 (Version 2)
Quarter: 2014Q2

REPORT INFORMATION
  Report Type: Spontaneous
  Country: JP (occurrence: JP)
  Receive Date: 20140521
  Receipt Date: 20140521
  Transmission Date: 20141212
  Serious: Yes (Hospitalization, Other)
  Sender: FDA-Public Use
  Company Number: JP-PFIZER INC-2014119887

PATIENT
  Age: 77 Year
  Sex: Female
  Weight: 55 kg

DRUGS (19)
  1. LYRICA [Suspect]
     Indication: NEUROPATHY PERIPHERAL
     Dosage: 25 MG, 2X/DAY
     Route: 048
     Dates: start: 20110805, end: 20110901
  2. LYRICA [Suspect]
     Dosage: 25 MG, 1X/DAY
     Route: 048
     Dates: start: 20110902, end: 20111006
  3. LYRICA [Suspect]
     Dosage: 25 MG, 1X/DAY
     Route: 048
     Dates: start: 20130122, end: 2013
  4. ECARD HD [Concomitant]
     Route: 048
  5. AMLODIPINE [Concomitant]
     Dosage: 5 MG, DAILY
     Route: 048
  6. LASIX [Concomitant]
     Dosage: 20 MG, DAILY
  7. RENIVEZE [Concomitant]
     Dosage: 5 MG, DAILY
  8. BIOFERMIN [Concomitant]
  9. CILOSTAZOL [Concomitant]
     Dosage: 100 MG, DAILY
  10. MUCODYNE [Concomitant]
     Dosage: 250 MG, DAILY
  11. PARIET [Concomitant]
     Dosage: 10 MG, DAILY
  12. MECOBALAMIN [Concomitant]
     Dosage: 500 UG, DAILY
  13. URITOS OD [Concomitant]
     Dosage: 0.1 MG, DAILY
     Dates: start: 20110302
  14. HYPEN [Concomitant]
  15. REBAMIPIDE [Concomitant]
  16. THEO-DUR [Concomitant]
  17. EPINASTINE HYDROCHLORIDE [Concomitant]
  18. LENDORMIN D [Concomitant]
  19. TULOBUTEROL [Concomitant]

REACTIONS (7)
  - Urinary retention [Recovered/Resolved]
  - Decreased appetite [Unknown]
  - Malaise [Unknown]
  - Oedema [Recovered/Resolved]
  - Urethral pain [Recovered/Resolved]
  - Back pain [Recovered/Resolved]
  - Hypoaesthesia [Recovered/Resolved]
